FAERS Safety Report 9378060 (Version 1)
Quarter: 2013Q3

REPORT INFORMATION
  Report Type: Spontaneous
  Country: FR (occurrence: FR)
  Receive Date: 20130701
  Receipt Date: 20130701
  Transmission Date: 20140515
  Serious: Yes (Hospitalization)
  Sender: FDA-Public Use
  Company Number: FR-VERTEX PHARMACEUTICALS INC-2013-007603

PATIENT
  Age: 47 Year
  Sex: Male

DRUGS (4)
  1. INCIVO [Suspect]
     Indication: HEPATITIS C
     Dosage: 6 DF, QD
     Route: 048
     Dates: start: 20120620, end: 201209
  2. PEGASYS [Suspect]
     Indication: HEPATITIS C
     Dosage: DOSAGE FORM: UNSPECIFIED
     Route: 058
     Dates: start: 20120620
  3. COPEGUS [Suspect]
     Indication: HEPATITIS C
     Dosage: DOSAGE FORM: UNSPECIFIED
     Route: 048
     Dates: start: 20120620, end: 20120925
  4. COPEGUS [Suspect]
     Dosage: DOSAGE FORM: UNSPECIFIED
     Route: 048
     Dates: start: 20120926

REACTIONS (3)
  - Neutropenia [Unknown]
  - Anaemia [Recovered/Resolved]
  - Lymphopenia [Unknown]
